FAERS Safety Report 25921065 (Version 3)
Quarter: 2025Q4

REPORT INFORMATION
  Report Type: Spontaneous
  Country: EU (occurrence: EU)
  Receive Date: 20251014
  Receipt Date: 20251202
  Transmission Date: 20260119
  Serious: Yes (Hospitalization, Other)
  Sender: NOVARTIS
  Company Number: EU-002147023-NVSC2025FR147167

PATIENT
  Age: 23 Week
  Sex: Female
  Weight: 5.3 kg

DRUGS (3)
  1. ZOLGENSMA [Suspect]
     Active Substance: ONASEMNOGENE ABEPARVOVEC-XIOI
     Indication: Spinal muscular atrophy
     Dosage: 30.3 ML, ONCE/SINGLE (6.1 X 1^14) VECTOR GENOMES
     Route: 042
     Dates: start: 20250909, end: 20250909
  2. SODIUM FEREDETATE [Concomitant]
     Active Substance: SODIUM FEREDETATE
     Indication: Anaemia
     Dosage: 2 ML
     Route: 065
     Dates: start: 20250905
  3. NUSINERSEN [Concomitant]
     Active Substance: NUSINERSEN
     Indication: Product used for unknown indication
     Dosage: 3 DOSAGE FORM
     Route: 065

REACTIONS (4)
  - Thrombocytopenia [Recovered/Resolved]
  - Bradycardia [Unknown]
  - Fatigue [Unknown]
  - Transaminases abnormal [Unknown]

NARRATIVE: CASE EVENT DATE: 20250916
